FAERS Safety Report 17185862 (Version 3)
Quarter: 2019Q4

REPORT INFORMATION
  Report Type: Spontaneous
  Country: CN (occurrence: CN)
  Receive Date: 20191220
  Receipt Date: 20191224
  Transmission Date: 20200122
  Serious: Yes (Hospitalization)
  Sender: FDA-Public Use
  Company Number: CN-JNJFOC-20191225476

PATIENT
  Age: 56 Year
  Sex: Male

DRUGS (4)
  1. PARACETAMOL [Suspect]
     Active Substance: ACETAMINOPHEN
     Indication: ASTHENIA
  2. ALCOHOL. [Suspect]
     Active Substance: ALCOHOL
     Indication: DIZZINESS
     Route: 048
  3. PARACETAMOL [Suspect]
     Active Substance: ACETAMINOPHEN
     Indication: DIZZINESS
     Dosage: 7 TABLETS IN DIVIDED DOSES
     Route: 048
  4. ALCOHOL. [Suspect]
     Active Substance: ALCOHOL
     Indication: ASTHENIA

REACTIONS (4)
  - Liver injury [Recovering/Resolving]
  - Product administration error [Unknown]
  - Acute kidney injury [Recovering/Resolving]
  - Product use in unapproved indication [Unknown]
